FAERS Safety Report 22084083 (Version 1)
Quarter: 2023Q1

REPORT INFORMATION
  Report Type: Report from Study
  Country: BR (occurrence: BR)
  Receive Date: 20230310
  Receipt Date: 20230310
  Transmission Date: 20230418
  Serious: Yes (Other)
  Sender: FDA-Public Use
  Company Number: BR-ABBVIE-4332156

PATIENT
  Sex: Female
  Weight: 56 kg

DRUGS (1)
  1. RINVOQ [Suspect]
     Active Substance: UPADACITINIB
     Indication: Rheumatoid arthritis
     Dosage: 1 TABLET
     Route: 048

REACTIONS (9)
  - Bedridden [Unknown]
  - Dysstasia [Unknown]
  - Osteitis [Unknown]
  - Loss of personal independence in daily activities [Unknown]
  - Blood glucose abnormal [Unknown]
  - Pain in extremity [Unknown]
  - Bone pain [Unknown]
  - Pain [Unknown]
  - Fear [Unknown]
